FAERS Safety Report 8240299-7 (Version None)
Quarter: 2012Q1

REPORT INFORMATION
  Report Type: 
  Country: None (occurrence: None)
  Receive Date: 20120328
  Receipt Date: 20120319
  Transmission Date: 20120608
  Serious: Yes (Hospitalization, Other)
  Sender: FDA-Public Use
  Company Number: US-ELI_LILLY_AND_COMPANY-US201008006033

PATIENT
  Sex: Female

DRUGS (11)
  1. FORTEO [Suspect]
     Indication: OSTEOPOROSIS
     Dosage: 20 UG, DAILY (1/D)
  2. CLONIDINE [Concomitant]
     Indication: BLOOD PRESSURE
  3. AMBIEN CR [Concomitant]
     Dosage: 5 MG, DAILY (1/D)
  4. LYRICA [Concomitant]
     Dosage: 150 MG, 2/D
  5. LIALDA [Concomitant]
     Indication: CROHN'S DISEASE
  6. LEXAPRO [Concomitant]
     Dosage: 20 MG, 2/D
  7. TRAZODONE HCL [Concomitant]
     Indication: SLEEP DISORDER
     Dosage: 300 MG, DAILY (1/D)
  8. TRIAMTERENE AND HYDROCHLOROTHIAZIDE [Concomitant]
  9. LORAZEPAM [Concomitant]
     Dosage: 1 MG, 4/D
  10. SKELAXIN [Concomitant]
     Dosage: 800 MG, AS NEEDED
  11. METHADONE HCL [Concomitant]
     Indication: PAIN
     Dosage: 5 MG, 3/D

REACTIONS (8)
  - URINARY TRACT INFECTION [None]
  - ARTHRALGIA [None]
  - NAUSEA [None]
  - DISORIENTATION [None]
  - HEADACHE [None]
  - PYREXIA [None]
  - GAIT DISTURBANCE [None]
  - ASTHENIA [None]
